FAERS Safety Report 20383613 (Version 1)
Quarter: 2022Q1

REPORT INFORMATION
  Report Type: Spontaneous
  Country: None (occurrence: US)
  Receive Date: 20220127
  Receipt Date: 20220127
  Transmission Date: 20220423
  Serious: No
  Sender: FDA-Public Use
  Company Number: US-SERB S.A.S.-2124349

PATIENT
  Age: 83 Year
  Sex: Female

DRUGS (2)
  1. CYANOKIT [Suspect]
     Active Substance: HYDROXOCOBALAMIN
     Indication: Poisoning
     Route: 042
  2. trisodium citrate (TRISODIUM CITRATE) [Concomitant]

REACTIONS (1)
  - Chromaturia [Recovering/Resolving]
